FAERS Safety Report 7700088-6 (Version None)
Quarter: 2011Q3

REPORT INFORMATION
  Report Type: 
  Country: None (occurrence: None)
  Receive Date: 20110822
  Receipt Date: 20110815
  Transmission Date: 20111222
  Serious: Yes (Hospitalization, Other)
  Sender: FDA-Public Use
  Company Number: BR-ABBOTT-11P-020-0846595-00

PATIENT
  Sex: Female

DRUGS (5)
  1. METHOTREXATE / FOLIC ACID [Concomitant]
     Indication: ANKYLOSING SPONDYLITIS
     Dosage: METHOTREXATE 15MG/FOLIC ACID 20 MG
     Route: 048
     Dates: start: 20080101, end: 20110628
  2. HUMIRA [Suspect]
     Indication: ANKYLOSING SPONDYLITIS
     Route: 058
     Dates: start: 20080601, end: 20110628
  3. COMBINED FORMULA [Concomitant]
     Indication: ANKYLOSING SPONDYLITIS
     Dosage: CYCLOBENZAPRINE10MG/MELOXICAM10MG/PREDNISONE5MG/FAMOTIDINE30MG
     Route: 048
     Dates: start: 20080101, end: 20110628
  4. AMITRIPTYLINE HCL [Concomitant]
     Indication: PRODUCT USED FOR UNKNOWN INDICATION
     Dates: end: 20110812
  5. HUMIRA [Suspect]
     Route: 058
     Dates: start: 20110718

REACTIONS (13)
  - PANCREAS INFECTION [None]
  - PAIN [None]
  - OESOPHAGITIS [None]
  - INJECTION SITE PAIN [None]
  - INCORRECT PRODUCT STORAGE [None]
  - VOMITING [None]
  - OEDEMA PERIPHERAL [None]
  - WEIGHT DECREASED [None]
  - GASTRIC ULCER [None]
  - GASTROENTERITIS ESCHERICHIA COLI [None]
  - GASTRITIS [None]
  - GASTRIC INFECTION [None]
  - ANAEMIA [None]
